FAERS Safety Report 7138001-5 (Version None)
Quarter: 2010Q4

REPORT INFORMATION
  Report Type: 
  Country: None (occurrence: None)
  Receive Date: 20101118
  Receipt Date: 20101108
  Transmission Date: 20110411
  Serious: Yes (Hospitalization)
  Sender: FDA-Public Use
  Company Number: DSA_43139_2010

PATIENT
  Sex: Male

DRUGS (6)
  1. BUPROPION HYDROCHLORIDE [Suspect]
     Indication: PRODUCT USED FOR UNKNOWN INDICATION
     Dosage: (150 MG QD ORAL)
     Route: 048
     Dates: start: 20100407, end: 20100501
  2. CARBAMAZEPINE [Suspect]
     Indication: PRODUCT USED FOR UNKNOWN INDICATION
     Dosage: (600 MG QD ORAL)
     Route: 048
  3. METFORMIN [Concomitant]
  4. INSULIN [Concomitant]
  5. SELOKEEN /00376902/ [Concomitant]
  6. GABAPENTIN [Concomitant]

REACTIONS (9)
  - ABDOMINAL DISCOMFORT [None]
  - DRUG INTERACTION [None]
  - EPILEPSY [None]
  - FEELING ABNORMAL [None]
  - HEADACHE [None]
  - LOSS OF CONSCIOUSNESS [None]
  - NAUSEA [None]
  - PRURITUS [None]
  - WEIGHT DECREASED [None]
